FAERS Safety Report 20801772 (Version 1)
Quarter: 2022Q2

REPORT INFORMATION
  Report Type: Spontaneous
  Country: US (occurrence: None)
  Receive Date: 20220506
  Receipt Date: 20220506
  Transmission Date: 20220720
  Serious: Yes (unspecified)
  Sender: FDA-Public Use
  Company Number: None

PATIENT
  Age: 33 Year
  Sex: Female
  Weight: 65.77 kg

DRUGS (1)
  1. BEBTELOVIMAB [Suspect]
     Active Substance: BEBTELOVIMAB
     Indication: Coronavirus infection
     Dosage: OTHER QUANTITY : 175MG/2ML;?FREQUENCY : ONCE;?
     Route: 042
     Dates: start: 20220505, end: 20220505

REACTIONS (6)
  - Dizziness [None]
  - Nausea [None]
  - Infusion related reaction [None]
  - Insomnia [None]
  - Fatigue [None]
  - Headache [None]

NARRATIVE: CASE EVENT DATE: 20220505
